FAERS Safety Report 17113672 (Version 1)
Quarter: 2019Q4

REPORT INFORMATION
  Report Type: Spontaneous
  Country: BR (occurrence: BR)
  Receive Date: 20191205
  Receipt Date: 20191205
  Transmission Date: 20200122
  Serious: Yes (Other)
  Sender: FDA-Public Use
  Company Number: BR-TEVA-2019-BR-1148719

PATIENT
  Sex: Female

DRUGS (1)
  1. ACTONEL (RISEDRONIC ACID) [Suspect]
     Active Substance: RISEDRONIC ACID
     Route: 065
     Dates: start: 20191107

REACTIONS (5)
  - Pharyngeal inflammation [Recovered/Resolved]
  - Pain in extremity [Recovered/Resolved]
  - Dysentery [Recovered/Resolved]
  - Headache [Recovered/Resolved]
  - Ear pain [Recovered/Resolved]
